FAERS Safety Report 19815107 (Version 5)
Quarter: 2022Q4

REPORT INFORMATION
  Report Type: Report from Study
  Country: US (occurrence: US)
  Receive Date: 20210910
  Receipt Date: 20221031
  Transmission Date: 20230113
  Serious: Yes (Hospitalization, Other)
  Sender: FDA-Public Use
  Company Number: US-CLINIGEN GROUP PLC/ CLINIGEN HEALTHCARE LTD-US-CLGN-21-00496

PATIENT
  Age: 66 Year
  Sex: Female
  Weight: 54 kg

DRUGS (9)
  1. PROLEUKIN [Suspect]
     Active Substance: ALDESLEUKIN
     Indication: Non-small cell lung cancer metastatic
     Route: 042
     Dates: start: 20210623, end: 20210625
  2. LIFILEUCEL [Suspect]
     Active Substance: LIFILEUCEL
     Indication: Non-small cell lung cancer metastatic
     Route: 042
     Dates: start: 20210622, end: 20210622
  3. CYCLOPHOSPHAMIDE [Suspect]
     Active Substance: CYCLOPHOSPHAMIDE
     Indication: Non-small cell lung cancer metastatic
     Route: 042
     Dates: start: 20210617, end: 20210618
  4. FLUDARABINE [Suspect]
     Active Substance: FLUDARABINE PHOSPHATE
     Indication: Non-small cell lung cancer metastatic
     Route: 042
     Dates: start: 20210617, end: 20210621
  5. MESNA [Suspect]
     Active Substance: MESNA
     Indication: Non-small cell lung cancer metastatic
     Route: 042
     Dates: start: 20210617, end: 20210618
  6. CEFEPIME [Concomitant]
     Active Substance: CEFEPIME HYDROCHLORIDE
     Indication: Pneumonia
     Dates: start: 20210816, end: 20210819
  7. VANCOMYCIN [Concomitant]
     Active Substance: VANCOMYCIN
     Indication: Pneumonia
     Dates: start: 20210816, end: 20210816
  8. VANCOMYCIN [Concomitant]
     Active Substance: VANCOMYCIN
     Dates: start: 20210818, end: 20210819
  9. AMOXICILLIN [Concomitant]
     Active Substance: AMOXICILLIN
     Indication: Pneumonia
     Dates: start: 20210901, end: 20210903

REACTIONS (3)
  - Arthralgia [Recovered/Resolved]
  - Fatigue [Unknown]
  - Diarrhoea [Not Recovered/Not Resolved]

NARRATIVE: CASE EVENT DATE: 20210815
